FAERS Safety Report 10246326 (Version 1)
Quarter: 2014Q2

REPORT INFORMATION
  Report Type: Spontaneous
  Country: US (occurrence: US)
  Receive Date: 20140619
  Receipt Date: 20140619
  Transmission Date: 20141212
  Serious: No
  Sender: FDA-Public Use
  Company Number: US-B.I. PHARMACEUTICALS,INC./RIDGEFIELD-2014-BI-25637PF

PATIENT
  Sex: Female

DRUGS (24)
  1. SPIRIVA [Suspect]
     Indication: PRODUCT USED FOR UNKNOWN INDICATION
     Dosage: 37.5 MG
     Route: 065
  2. SUTENT [Suspect]
     Indication: PRODUCT USED FOR UNKNOWN INDICATION
     Dosage: 37.5 MG
     Route: 065
  3. SUTENT [Suspect]
     Dosage: 50 MG
     Route: 065
  4. SUTENT [Suspect]
     Route: 065
  5. SYNTHROID [Concomitant]
     Indication: THYROID DISORDER
     Route: 065
  6. HYDROCODONE [Concomitant]
     Route: 065
  7. METHOCARBONAL [Concomitant]
     Route: 065
  8. PHENERGAN [Concomitant]
     Route: 065
  9. FLINSTONE VITAMIN WITH IRON [Concomitant]
     Route: 065
  10. GABAPENTINE [Concomitant]
     Route: 065
  11. KLONIPIN [Concomitant]
     Route: 065
  12. PROBIOTICS [Concomitant]
     Route: 065
  13. VITAMIN B [Concomitant]
     Route: 060
  14. CALCIUM CARBONATE WITH D [Concomitant]
     Route: 065
  15. OSTEO BIFLEX [Concomitant]
     Route: 065
  16. CPAP MACHINE WHEN SLEEPING [Concomitant]
     Route: 065
  17. IMODIUM AD [Concomitant]
     Route: 065
  18. FOLIC ACID [Concomitant]
     Route: 065
  19. EYE DROPS [Concomitant]
     Route: 065
  20. HYDROCORTISONE OINTMENT [Concomitant]
     Route: 065
  21. UNNAMED OINTMENT [Concomitant]
     Route: 065
  22. POTASSIUM [Concomitant]
     Route: 065
  23. MULTI-VITAMIN [Concomitant]
     Route: 065
  24. VITAMIN C [Concomitant]
     Route: 065

REACTIONS (7)
  - Fatigue [Unknown]
  - Diarrhoea [Unknown]
  - Nausea [Unknown]
  - Lung infection [Recovered/Resolved]
  - Asthenia [Unknown]
  - Vomiting [Unknown]
  - Dehydration [Unknown]
